FAERS Safety Report 7526235-7 (Version None)
Quarter: 2011Q2

REPORT INFORMATION
  Report Type: 
  Country: None (occurrence: None)
  Receive Date: 20110606
  Receipt Date: 20110526
  Transmission Date: 20111010
  Serious: Yes (Disabling, Other)
  Sender: FDA-Public Use
  Company Number: PHHY2011GB45186

PATIENT
  Age: 76 Year
  Sex: Male
  Weight: 85.73 kg

DRUGS (10)
  1. E45 [Concomitant]
  2. ZOLADEX [Concomitant]
     Dosage: UNK
     Dates: start: 20101231
  3. ACETAMINOPHEN [Concomitant]
     Dosage: UNK
  4. KETOCONAZOLE [Concomitant]
     Dosage: UNK
     Dates: start: 20110128
  5. BICALUTAMIDE [Suspect]
     Dosage: 50 MG, UNK
     Route: 048
     Dates: start: 20110104, end: 20110301
  6. BETAMETHASONE VALERATE [Concomitant]
     Dosage: UNK
     Dates: start: 20110214
  7. FLOXACILLIN SODIUM [Concomitant]
     Dosage: UNK
     Dates: start: 20110214
  8. HYPROMELLOSE [Concomitant]
     Dosage: UNK
  9. ASPIRIN [Concomitant]
     Dosage: UNK
  10. BISOPROLOL FUMARATE [Concomitant]
     Dosage: UNK

REACTIONS (4)
  - EYE PRURITUS [None]
  - EYE PAIN [None]
  - JOINT SWELLING [None]
  - PENILE OEDEMA [None]
